FAERS Safety Report 15022541 (Version 2)
Quarter: 2018Q3

REPORT INFORMATION
  Report Type: Spontaneous
  Country: JP (occurrence: JP)
  Receive Date: 20180618
  Receipt Date: 20180709
  Transmission Date: 20181010
  Serious: Yes (Hospitalization, Other)
  Sender: FDA-Public Use
  Company Number: JP-GLAXOSMITHKLINE-JP2018JPN104079

PATIENT
  Age: 73 Year
  Sex: Female

DRUGS (7)
  1. EPINEPHRINE. [Concomitant]
     Active Substance: EPINEPHRINE
     Dosage: 0.2 MG, UNK
  2. VENTOLINE [Suspect]
     Active Substance: ALBUTEROL
     Indication: ASTHMA
     Dosage: UNK
     Route: 048
  3. VENTOLINE [Suspect]
     Active Substance: ALBUTEROL
     Indication: ASTHMA
     Dosage: UNK
     Route: 055
  4. PRANLUKAST [Concomitant]
     Active Substance: PRANLUKAST
     Dosage: UNK
  5. PROCATEROL [Concomitant]
     Active Substance: PROCATEROL HYDROCHLORIDE
     Dosage: UNK
  6. VENTOLINE [Suspect]
     Active Substance: ALBUTEROL
     Dosage: 1 MG, TID
     Route: 055
  7. HYDROCORTISONE. [Concomitant]
     Active Substance: HYDROCORTISONE
     Dosage: 300 MG, 1D

REACTIONS (9)
  - Dyspnoea [Recovering/Resolving]
  - Stress cardiomyopathy [Recovering/Resolving]
  - Respiratory failure [Recovering/Resolving]
  - Asthma [Recovering/Resolving]
  - Microvascular coronary artery disease [Recovering/Resolving]
  - Cardiac failure [Recovering/Resolving]
  - Cardiomyopathy [Recovering/Resolving]
  - Ventricular hypokinesia [Recovering/Resolving]
  - Wheezing [Recovering/Resolving]
